FAERS Safety Report 6316996-7 (Version None)
Quarter: 2009Q3

REPORT INFORMATION
  Report Type: 
  Country: None (occurrence: None)
  Receive Date: 20090820
  Receipt Date: 20090813
  Transmission Date: 20100115
  Serious: Yes (Death)
  Sender: FDA-Public Use
  Company Number: US-GILEAD-2009-0023064

PATIENT
  Sex: Female
  Weight: 83.536 kg

DRUGS (26)
  1. LETAIRIS [Suspect]
     Indication: PULMONARY ARTERIAL HYPERTENSION
     Route: 048
     Dates: start: 20081117
  2. OXYGEN [Concomitant]
  3. AMLODIPINE BESYLATE [Concomitant]
  4. NORVASC [Concomitant]
  5. MECLIZINE [Concomitant]
  6. MONOPRIL [Concomitant]
  7. ISORDIL [Concomitant]
  8. KLONOPIN [Concomitant]
  9. REQUIP [Concomitant]
  10. PREMARIN [Concomitant]
  11. GLUCOTROL XL [Concomitant]
  12. SERTRALINE HCL [Concomitant]
  13. LYRICA [Concomitant]
  14. LANTUS [Concomitant]
  15. TIZANIDINE HCL [Concomitant]
  16. NEXIUM [Concomitant]
  17. LEVOTHYROXINE [Concomitant]
  18. HYDROCODONE [Concomitant]
  19. HYOSCYAMINE [Concomitant]
  20. GLYCOLAX [Concomitant]
  21. ACTOS [Concomitant]
  22. RENAGEL [Concomitant]
  23. FOSRENOL [Concomitant]
  24. DETROL LA [Concomitant]
  25. POLYETHYLENE GLYCOL [Concomitant]
  26. SENSIPAR [Concomitant]

REACTIONS (1)
  - DEATH [None]
